FAERS Safety Report 24272455 (Version 2)
Quarter: 2024Q3

REPORT INFORMATION
  Report Type: Spontaneous
  Country: ES (occurrence: ES)
  Receive Date: 20240902
  Receipt Date: 20240906
  Transmission Date: 20241017
  Serious: Yes (Other)
  Sender: AUROBINDO
  Company Number: ES-ELI_LILLY_AND_COMPANY-ES202408000754

PATIENT
  Age: 39 Year
  Sex: Female

DRUGS (6)
  1. LETROZOLE [Suspect]
     Active Substance: LETROZOLE
     Indication: Product used for unknown indication
     Dosage: UNK
     Route: 065
  2. ABEMACICLIB [Suspect]
     Active Substance: ABEMACICLIB
     Indication: Breast cancer
     Dosage: 150 MILLIGRAM
     Route: 048
     Dates: start: 20240617
  3. LOPERAMIDE HYDROCHLORIDE [Suspect]
     Active Substance: LOPERAMIDE HYDROCHLORIDE
     Indication: Diarrhoea
     Dosage: 1 DOSAGE FORM
     Route: 065
  4. LOPERAMIDE HYDROCHLORIDE [Suspect]
     Active Substance: LOPERAMIDE HYDROCHLORIDE
     Dosage: 2 DOSAGE FORM
     Route: 065
  5. PROBIOTICS NOS [Concomitant]
     Active Substance: PROBIOTICS NOS
     Indication: Product used for unknown indication
     Dosage: UNK
     Route: 065
  6. SALINE [Concomitant]
     Active Substance: SODIUM CHLORIDE
     Indication: Product used for unknown indication
     Dosage: UNK
     Route: 065

REACTIONS (22)
  - Hyperthyroidism [Recovering/Resolving]
  - Frequent bowel movements [Unknown]
  - Chills [Recovering/Resolving]
  - Pyrexia [Recovering/Resolving]
  - Dysbiosis [Recovering/Resolving]
  - Hunger [Recovering/Resolving]
  - Dysuria [Recovering/Resolving]
  - Feeling cold [Recovering/Resolving]
  - Malaise [Recovering/Resolving]
  - Urinary tract infection [Recovering/Resolving]
  - Diarrhoea [Recovering/Resolving]
  - Fatigue [Recovering/Resolving]
  - Abdominal pain [Recovering/Resolving]
  - Asthenia [Recovering/Resolving]
  - Feeling abnormal [Recovering/Resolving]
  - Flatulence [Recovering/Resolving]
  - Migraine [Recovering/Resolving]
  - Nausea [Recovering/Resolving]
  - Rash [Recovering/Resolving]
  - Weight decreased [Recovering/Resolving]
  - Vomiting [Recovered/Resolved]
  - Mental disorder [Recovered/Resolved]

NARRATIVE: CASE EVENT DATE: 20240601
